FAERS Safety Report 23553973 (Version 1)
Quarter: 2024Q1

REPORT INFORMATION
  Report Type: Spontaneous
  Country: RU (occurrence: RU)
  Receive Date: 20240222
  Receipt Date: 20240222
  Transmission Date: 20240410
  Serious: Yes (Other)
  Sender: FDA-Public Use
  Company Number: RU-SANDOZ-SDZ2024RU017969

PATIENT
  Sex: Male
  Weight: 24 kg

DRUGS (3)
  1. ERELZI [Suspect]
     Active Substance: ETANERCEPT-SZZS
     Indication: Oligoarthritis
     Dosage: 25 MG
     Route: 058
     Dates: start: 20231205, end: 20231225
  2. FOLIC ACID [Concomitant]
     Active Substance: FOLIC ACID
     Indication: Product used for unknown indication
     Dosage: 5 MG PER OS (MANUFACTURER:  OZON PHARM LLC)
     Route: 048
  3. METHOTREXATE [Concomitant]
     Active Substance: METHOTREXATE
     Indication: Product used for unknown indication
     Dosage: (MANUFACTURER: OZON PHARM  LLC)
     Route: 030
     Dates: start: 20220624

REACTIONS (6)
  - Dizziness [Recovering/Resolving]
  - Pain [Recovering/Resolving]
  - Oligoarthritis [Recovering/Resolving]
  - Headache [Recovering/Resolving]
  - Nausea [Recovering/Resolving]
  - Vomiting [Recovering/Resolving]

NARRATIVE: CASE EVENT DATE: 20231205
